FAERS Safety Report 8552717-5 (Version None)
Quarter: 2012Q3

REPORT INFORMATION
  Report Type: 
  Country: None (occurrence: None)
  Receive Date: 20120731
  Receipt Date: 20120724
  Transmission Date: 20120928
  Serious: Yes (Disabling, Other)
  Sender: FDA-Public Use
  Company Number: PHHY2012CA051993

PATIENT
  Sex: Male

DRUGS (1)
  1. CLOZARIL [Suspect]
     Dates: start: 20111212, end: 20120531

REACTIONS (8)
  - DIABETES MELLITUS [None]
  - DRUG INEFFECTIVE [None]
  - DELUSION [None]
  - ANOSOGNOSIA [None]
  - SEXUALLY INAPPROPRIATE BEHAVIOUR [None]
  - PARANOIA [None]
  - WEIGHT INCREASED [None]
  - IRRITABILITY [None]
